FAERS Safety Report 6456584-5 (Version None)
Quarter: 2009Q4

REPORT INFORMATION
  Report Type: 
  Country: None (occurrence: None)
  Receive Date: 20091125
  Receipt Date: 20091112
  Transmission Date: 20100525
  Serious: Yes (Congenital Anomaly, Other)
  Sender: FDA-Public Use
  Company Number: GB-CELGENEUS-167-20484-09111005

PATIENT
  Sex: Female
  Weight: 2.03 kg

DRUGS (7)
  1. INNOHEP [Suspect]
     Route: 064
  2. PROSTAGLANDIN PGE2 [Concomitant]
     Route: 064
  3. SYNTOCINON [Concomitant]
     Route: 064
  4. BUPIVACAINE [Concomitant]
     Route: 064
  5. FENTANYL [Concomitant]
     Route: 064
  6. SYNTOMETRINE [Concomitant]
     Route: 064
  7. ASPIRIN [Concomitant]
     Route: 064

REACTIONS (5)
  - DRUG EXPOSURE DURING PREGNANCY [None]
  - FALLOT'S TETRALOGY [None]
  - FOETAL GROWTH RETARDATION [None]
  - HIP DEFORMITY [None]
  - TRISOMY 21 [None]
